FAERS Safety Report 4931379-X (Version None)
Quarter: 2006Q1

REPORT INFORMATION
  Report Type: 
  Country: None (occurrence: None)
  Receive Date: 20060303
  Receipt Date: 20051216
  Transmission Date: 20060701
  Serious: Yes (Other)
  Sender: FDA-Public Use
  Company Number: PHEH2005US13592

PATIENT
  Age: 86 Year
  Sex: Female

DRUGS (3)
  1. ZOMETA [Suspect]
     Indication: METASTASES TO BONE
     Dosage: 4 MG MONTHLY
     Dates: start: 20031222, end: 20051013
  2. XELODA [Concomitant]
     Indication: BREAST CANCER METASTATIC
     Dosage: 1000 UNK, BID
     Dates: start: 20040521, end: 20050912
  3. FASLODEX [Concomitant]
     Indication: BREAST CANCER METASTATIC
     Dosage: 250 MG, QMO
     Dates: start: 20031222, end: 20040423

REACTIONS (3)
  - BONE DISORDER [None]
  - BONE LESION [None]
  - OSTEONECROSIS [None]
